FAERS Safety Report 13235814 (Version 5)
Quarter: 2017Q2

REPORT INFORMATION
  Report Type: Spontaneous
  Country: CH (occurrence: US)
  Receive Date: 20170215
  Receipt Date: 20170411
  Transmission Date: 20170830
  Serious: Yes (Life-Threatening)
  Sender: FDA-Public Use
  Company Number: CH-LPDUSPRD-20170156

PATIENT
  Age: 51 Year
  Sex: Male
  Weight: 89.5 kg

DRUGS (4)
  1. HECTOROL [Concomitant]
     Active Substance: DOXERCALCIFEROL
     Dosage: DOSE UNKNOWN
     Route: 040
  2. VENOFER [Suspect]
     Active Substance: IRON SUCROSE
     Dosage: 100 MG
     Route: 040
     Dates: start: 20170112, end: 20170202
  3. HEPARIN [Concomitant]
     Active Substance: HEPARIN SODIUM
     Dosage: DOSE UNKNOWN
     Route: 065
  4. MIRCERA [Suspect]
     Active Substance: METHOXY POLYETHYLENE GLYCOL-EPOETIN BETA
     Dosage: 225 MCG Q2 WEEKS
     Route: 040
     Dates: start: 20160421, end: 20170124

REACTIONS (12)
  - Unresponsive to stimuli [Unknown]
  - Heart rate increased [Unknown]
  - Tachycardia [Unknown]
  - Tremor [Unknown]
  - Respiratory distress [Unknown]
  - Dyspnoea [Unknown]
  - Posturing [Unknown]
  - Erythema [Unknown]
  - Respiratory arrest [Unknown]
  - Flushing [Unknown]
  - Loss of consciousness [Unknown]
  - Oxygen saturation decreased [Unknown]

NARRATIVE: CASE EVENT DATE: 20170124
